FAERS Safety Report 17089336 (Version 1)
Quarter: 2019Q4

REPORT INFORMATION
  Report Type: Spontaneous
  Country: FR (occurrence: FR)
  Receive Date: 20191128
  Receipt Date: 20191128
  Transmission Date: 20200122
  Serious: Yes (Disabling, Other)
  Sender: FDA-Public Use
  Company Number: FR-GLAXOSMITHKLINE-FR2019210149

PATIENT
  Age: 84 Year
  Sex: Male
  Weight: 69 kg

DRUGS (10)
  1. DOCETAXEL. [Suspect]
     Active Substance: DOCETAXEL
     Indication: PROSTATE CANCER
     Dosage: 87 MG, CYC
     Route: 041
     Dates: start: 20180327, end: 20181210
  2. RAMIPRIL. [Suspect]
     Active Substance: RAMIPRIL
     Indication: HYPERTENSION
     Dosage: 2 DF, QD
     Route: 048
     Dates: start: 2016, end: 20191004
  3. METHYLPREDNISOLONE. [Suspect]
     Active Substance: METHYLPREDNISOLONE
     Indication: PREMEDICATION
     Dosage: 70 MG,CYCLICAL
     Route: 041
     Dates: start: 20190716, end: 20190917
  4. BISOPROLOL FUMARAT [Suspect]
     Active Substance: BISOPROLOL FUMARATE
     Indication: HYPERTENSION
     Dosage: 1 DF, QD
     Route: 048
     Dates: start: 201705, end: 201910
  5. FIRMAGON [Suspect]
     Active Substance: DEGARELIX ACETATE
     Indication: PROSTATE CANCER
     Dosage: 1 DF, WE
     Route: 058
     Dates: start: 20181008
  6. ONDANSETRON [Suspect]
     Active Substance: ONDANSETRON
     Indication: PREMEDICATION
     Dosage: CYCLICAL
     Route: 042
     Dates: start: 20190716, end: 20190917
  7. RANITIDINE HYDROCHLORIDE. [Suspect]
     Active Substance: RANITIDINE HYDROCHLORIDE
     Indication: PREMEDICATION
     Dosage: 50 MG,CYCLICAL
     Route: 041
     Dates: start: 20190716, end: 20190917
  8. DEXCHLORPHENIRAMINE MALEATE. [Suspect]
     Active Substance: DEXCHLORPHENIRAMINE MALEATE
     Indication: PREMEDICATION
     Dosage: CYCLICAL
     Route: 042
     Dates: start: 20190716, end: 20190917
  9. JEVTANA [Suspect]
     Active Substance: CABAZITAXEL
     Indication: PROSTATE CANCER
     Dosage: 43.75 MG,CYCLICAL
     Route: 041
     Dates: start: 20190716, end: 20190917
  10. KARDEGIC [Suspect]
     Active Substance: ASPIRIN DL-LYSINE
     Indication: PRODUCT USED FOR UNKNOWN INDICATION
     Dosage: 1 DF, QD,POWDER FOR ORAL SOLUTION IN SACHET-DOSE
     Route: 048
     Dates: start: 201704, end: 20190921

REACTIONS (2)
  - Retinal detachment [Recovered/Resolved with Sequelae]
  - Necrotising retinitis [Not Recovered/Not Resolved]

NARRATIVE: CASE EVENT DATE: 201909
